FAERS Safety Report 7015989-4 (Version None)
Quarter: 2010Q3

REPORT INFORMATION
  Report Type: 
  Country: None (occurrence: None)
  Receive Date: 20100927
  Receipt Date: 20100122
  Transmission Date: 20110219
  Serious: No
  Sender: FDA-Public Use
  Company Number: US-ASTRAZENECA-2010SE03354

PATIENT
  Age: 72 Year
  Sex: Female
  Weight: 68 kg

DRUGS (4)
  1. ARIMIDEX [Suspect]
     Indication: BREAST CANCER
     Route: 048
     Dates: start: 20090128
  2. ATENOLOL [Concomitant]
     Indication: HYPERTENSION
  3. VITAMINS [Concomitant]
  4. ANTIHYPERTENSIVE MEDICATION [Concomitant]
     Indication: HYPERTENSION

REACTIONS (8)
  - ARTHRALGIA [None]
  - BLADDER SPASM [None]
  - BURNING SENSATION [None]
  - CATARACT [None]
  - DYSURIA [None]
  - HYPERTENSION [None]
  - RASH [None]
  - URINE ODOUR ABNORMAL [None]
